FAERS Safety Report 15448815 (Version 1)
Quarter: 2018Q3

REPORT INFORMATION
  Report Type: Report from Study
  Country: US (occurrence: US)
  Receive Date: 20180929
  Receipt Date: 20180929
  Transmission Date: 20181010
  Serious: Yes (Other)
  Sender: FDA-Public Use
  Company Number: PHEH2018US039888

PATIENT
  Sex: Male

DRUGS (1)
  1. JADENU [Suspect]
     Active Substance: DEFERASIROX
     Indication: PRODUCT USED FOR UNKNOWN INDICATION
     Route: 065

REACTIONS (7)
  - Myelodysplastic syndrome [Unknown]
  - Deafness [Unknown]
  - Blindness [Unknown]
  - Anaemia [Unknown]
  - Blood iron increased [Unknown]
  - Gait disturbance [Unknown]
  - Dyspnoea [Unknown]
